FAERS Safety Report 10842312 (Version 8)
Quarter: 2015Q4

REPORT INFORMATION
  Report Type: Spontaneous
  Country: US (occurrence: US)
  Receive Date: 20150220
  Receipt Date: 20151021
  Transmission Date: 20160304
  Serious: Yes (Other)
  Sender: FDA-Public Use
  Company Number: US-PFIZER INC-2015061071

PATIENT
  Age: 66 Year
  Sex: Female
  Weight: 67 kg

DRUGS (17)
  1. SUTENT [Suspect]
     Active Substance: SUNITINIB MALATE
     Dosage: 37.5 MG, CYCLIC
     Route: 048
  2. SUTENT [Suspect]
     Active Substance: SUNITINIB MALATE
     Dosage: 37.5 MG, CYCLIC (2 WEEKS ON/1 WEEK OFF)
  3. COMBIVENT [Concomitant]
     Active Substance: ALBUTEROL SULFATE\IPRATROPIUM BROMIDE
     Dosage: UNK UNK, AS NEEDED (1 PUFF Q.I.D, P.R.N)
     Route: 055
     Dates: start: 1995
  4. MIRACLE MOUTHWASH [Concomitant]
     Dosage: UNK
  5. POTASSIUM [Concomitant]
     Active Substance: POTASSIUM
     Dosage: 10 MEQ, DAILY
  6. ZYRTEC [Concomitant]
     Active Substance: CETIRIZINE HYDROCHLORIDE
     Dosage: UNK
  7. SUTENT [Suspect]
     Active Substance: SUNITINIB MALATE
     Indication: METASTATIC RENAL CELL CARCINOMA
     Dosage: 50 MG, CYCLIC (50 MG PER DAY)
     Route: 048
     Dates: start: 20141029
  8. SUTENT [Suspect]
     Active Substance: SUNITINIB MALATE
     Dosage: 25 MG, CYCLIC
     Route: 048
  9. ALOE VERA [Concomitant]
     Active Substance: ALOE VERA LEAF
     Dosage: 25 MG, AS NEEDED (DAILY)
     Route: 048
  10. MIRALAX [Concomitant]
     Active Substance: POLYETHYLENE GLYCOL 3350
     Dosage: 17 G, AS NEEDED (17 GRAMS IN FLUID P.R.N)
  11. FLOVENT [Concomitant]
     Active Substance: FLUTICASONE PROPIONATE
     Dosage: UNK, DAILY (1 PUFF DAILY)
     Route: 055
     Dates: start: 2000
  12. TYLENOL [Concomitant]
     Active Substance: ACETAMINOPHEN
     Indication: HEADACHE
     Dosage: 500 MG, AS NEEDED
  13. HYDROCODONE/ACETAMINOPHEN [Concomitant]
     Active Substance: ACETAMINOPHEN\HYDROCODONE
     Dosage: 5/325 TAKING OCCASIONALLY
  14. SUTENT [Suspect]
     Active Substance: SUNITINIB MALATE
     Dosage: 37.5 MG DAILY FOR 28 DAYS OFF FOR 14 DAYS REPEAT
     Dates: start: 201411
  15. VICODIN [Concomitant]
     Active Substance: ACETAMINOPHEN\HYDROCODONE BITARTRATE
     Indication: PAIN
     Dosage: UNK, AS NEEDED
     Dates: start: 201408
  16. FLONASE [Concomitant]
     Active Substance: FLUTICASONE PROPIONATE
     Dosage: UNK UNK, DAILY (1 SPRAY DAILY)
  17. ONDANSETRON [Concomitant]
     Active Substance: ONDANSETRON
     Dosage: 4 MG, AS NEEDED (4 MG EVERY 8 HOURS P.R.N)

REACTIONS (27)
  - Weight increased [Unknown]
  - Glossodynia [Recovered/Resolved]
  - Nephrolithiasis [Unknown]
  - Blood test abnormal [Recovered/Resolved]
  - Oedematous kidney [Unknown]
  - Pruritus [Not Recovered/Not Resolved]
  - Alopecia [Unknown]
  - Swollen tongue [Unknown]
  - Hair colour changes [Unknown]
  - Hypertension [Recovered/Resolved]
  - Decreased appetite [Recovered/Resolved]
  - Stomatitis [Recovered/Resolved]
  - Dermatitis [Recovered/Resolved]
  - Dysgeusia [Recovering/Resolving]
  - Inflammation [Unknown]
  - Glossodynia [Unknown]
  - Fatigue [Recovered/Resolved]
  - Pain in jaw [Unknown]
  - Dental care [Unknown]
  - Abdominal distension [Recovered/Resolved]
  - Madarosis [Unknown]
  - Hand dermatitis [Recovered/Resolved]
  - Perinephric collection [Unknown]
  - Nausea [Recovered/Resolved]
  - Oral pain [Recovering/Resolving]
  - Increased appetite [Unknown]
  - Dysgeusia [Unknown]

NARRATIVE: CASE EVENT DATE: 201411
